FAERS Safety Report 5914685-1 (Version None)
Quarter: 2008Q4

REPORT INFORMATION
  Report Type: 
  Country: None (occurrence: None)
  Receive Date: 20081010
  Receipt Date: 20080929
  Transmission Date: 20090506
  Serious: Yes (Hospitalization, Other)
  Sender: FDA-Public Use
  Company Number: JP-JNJFOC-20080906551

PATIENT
  Age: 31 Year
  Sex: Female

DRUGS (4)
  1. CRAVIT [Suspect]
     Indication: PNEUMONIA
     Route: 065
  2. LOXONIN [Suspect]
     Indication: PNEUMONIA
     Route: 065
  3. CEFDINIR [Concomitant]
     Indication: UPPER RESPIRATORY TRACT INFECTION
     Route: 065
  4. ACETAMINOPHEN [Concomitant]
     Indication: UPPER RESPIRATORY TRACT INFECTION
     Route: 065

REACTIONS (2)
  - IRITIS [None]
  - TUBULOINTERSTITIAL NEPHRITIS [None]
